FAERS Safety Report 4784459-6 (Version None)
Quarter: 2005Q3

REPORT INFORMATION
  Report Type: 
  Country: None (occurrence: None)
  Receive Date: 20050930
  Receipt Date: 20050928
  Transmission Date: 20060218
  Serious: Yes (Death, Life-Threatening, Hospitalization, Disabling, Other)
  Sender: FDA-Public Use
  Company Number: CA-BRISTOL-MYERS SQUIBB COMPANY-13126370

PATIENT
  Age: 77 Year
  Sex: Male
  Weight: 102 kg

DRUGS (3)
  1. BLINDED: IRBESARTAN [Suspect]
     Indication: HYPERTENSION
     Dates: start: 20041112
  2. WARFARIN SODIUM [Suspect]
     Indication: PROPHYLAXIS
     Dates: start: 20041112
  3. BLINDED: PLACEBO [Suspect]
     Indication: HYPERTENSION
     Dates: start: 20041112

REACTIONS (1)
  - RESPIRATORY FAILURE [None]
